FAERS Safety Report 23451556 (Version 1)
Quarter: 2024Q1

REPORT INFORMATION
  Report Type: Spontaneous
  Country: JP (occurrence: JP)
  Receive Date: 20240129
  Receipt Date: 20240129
  Transmission Date: 20240410
  Serious: Yes (Death, Life-Threatening, Disabling, Other)
  Sender: FDA-Public Use
  Company Number: JP-SA-SAC20240119001349

PATIENT
  Age: 78 Year
  Sex: Female

DRUGS (6)
  1. NICORANDIL [Suspect]
     Active Substance: NICORANDIL
     Indication: Product used for unknown indication
     Dosage: UNK
     Route: 065
  2. DOCETAXEL [Suspect]
     Active Substance: DOCETAXEL\DOCETAXEL ANHYDROUS
     Indication: Breast cancer
     Dosage: 100 MG, QD
     Route: 041
     Dates: start: 20230314, end: 20230606
  3. HERCEPTIN [Suspect]
     Active Substance: TRASTUZUMAB
     Indication: Breast cancer
     Dosage: 580 MG, QD
     Route: 041
     Dates: start: 20230313, end: 20230313
  4. HERCEPTIN [Suspect]
     Active Substance: TRASTUZUMAB
     Dosage: 420 MG, QD
     Route: 041
     Dates: start: 20230404, end: 20230516
  5. HERCEPTIN [Suspect]
     Active Substance: TRASTUZUMAB
     Dosage: 380 MG, QD
     Route: 041
     Dates: start: 20230606, end: 20230606
  6. DEXAMETHASONE SODIUM PHOSPHATE [Concomitant]
     Active Substance: DEXAMETHASONE PHOSPHATE\DEXAMETHASONE SODIUM PHOSPHATE
     Dosage: UNK
     Route: 065
     Dates: start: 20230314, end: 20230606

REACTIONS (5)
  - Disease progression [Fatal]
  - Respiratory arrest [Unknown]
  - Cardiac arrest [Unknown]
  - Febrile neutropenia [Unknown]
  - Stress cardiomyopathy [Unknown]

NARRATIVE: CASE EVENT DATE: 20231022
